FAERS Safety Report 8437035-8 (Version None)
Quarter: 2012Q2

REPORT INFORMATION
  Report Type: 
  Country: None (occurrence: None)
  Receive Date: 20120614
  Receipt Date: 20120604
  Transmission Date: 20120825
  Serious: Yes (Hospitalization)
  Sender: FDA-Public Use
  Company Number: JP-ELI_LILLY_AND_COMPANY-JP201202007753

PATIENT
  Age: 58 Year
  Sex: Female

DRUGS (13)
  1. BERAPROST SODIUM [Concomitant]
     Dosage: UNK
     Route: 048
     Dates: start: 20110726
  2. EPLERENONE [Concomitant]
     Route: 048
  3. LASIX [Concomitant]
     Route: 048
  4. HOKUNALIN [Concomitant]
     Indication: BRONCHITIS
     Dosage: UNK
     Route: 062
  5. AMOXAPINE [Concomitant]
     Route: 048
  6. MENDON [Concomitant]
     Route: 048
  7. ADCIRCA [Suspect]
     Indication: PULMONARY HYPERTENSION
     Dosage: 20 MG, QD
     Route: 048
     Dates: start: 20120221, end: 20120224
  8. BROCIN-CODEINE [Concomitant]
     Indication: BRONCHITIS
     Route: 048
  9. SELBEX [Concomitant]
     Route: 048
  10. DEPAS [Concomitant]
  11. WARFARIN POTASSIUM [Concomitant]
     Route: 048
  12. LUDIOMIL                                /SCH/ [Concomitant]
  13. ADCIRCA [Suspect]
     Dosage: UNK
     Route: 048

REACTIONS (2)
  - LEFT VENTRICULAR FAILURE [None]
  - OFF LABEL USE [None]
